FAERS Safety Report 7545796-5 (Version None)
Quarter: 2011Q2

REPORT INFORMATION
  Report Type: 
  Country: None (occurrence: None)
  Receive Date: 20110613
  Receipt Date: 20110613
  Transmission Date: 20111010
  Serious: Yes (Other)
  Sender: FDA-Public Use
  Company Number: None

PATIENT
  Sex: Male
  Weight: 65 kg

DRUGS (2)
  1. FLEBOGAMMA [Suspect]
     Dosage: { 5 GRAMS MONTHLY IV
     Route: 042
     Dates: start: 20110518, end: 20110518
  2. FLEBOGAMMA [Suspect]
     Dosage: 30 GRAMS MONTHLY IV
     Route: 042
     Dates: start: 20110420, end: 20110420

REACTIONS (2)
  - PRURITUS [None]
  - INFUSION RELATED REACTION [None]
